FAERS Safety Report 17745141 (Version 1)
Quarter: 2020Q2

REPORT INFORMATION
  Report Type: Spontaneous
  Country: US (occurrence: US)
  Receive Date: 20200504
  Receipt Date: 20200504
  Transmission Date: 20200714
  Serious: No
  Sender: FDA-Public Use
  Company Number: US-ASTRAZENECA-2020SE54358

PATIENT
  Sex: Female

DRUGS (4)
  1. MONTEKULAST [Concomitant]
     Active Substance: MONTELUKAST SODIUM
  2. SYMBICORT [Suspect]
     Active Substance: BUDESONIDE\FORMOTEROL FUMARATE DIHYDRATE
     Indication: ASTHMA
     Dosage: 160/4.5MCG, 2 PUFFS TWICE DAILY
     Route: 055
     Dates: start: 20200313
  3. OXYGEN. [Concomitant]
     Active Substance: OXYGEN
  4. VENTOLIN [Concomitant]
     Active Substance: ALBUTEROL SULFATE

REACTIONS (8)
  - Device issue [Unknown]
  - Asthma [Unknown]
  - Hypersensitivity [Unknown]
  - Stress [Unknown]
  - Malaise [Unknown]
  - Drug dose omission by device [Unknown]
  - Headache [Unknown]
  - Intentional device misuse [Unknown]
